FAERS Safety Report 4959541-0 (Version None)
Quarter: 2006Q1

REPORT INFORMATION
  Report Type: 
  Country: None (occurrence: None)
  Receive Date: 20060331
  Receipt Date: 20060216
  Transmission Date: 20060701
  Serious: Yes (Hospitalization)
  Sender: FDA-Public Use
  Company Number: FR-GLAXOSMITHKLINE-B0412361A

PATIENT
  Age: 83 Year
  Sex: Female

DRUGS (1)
  1. CLAMOXYL [Suspect]
     Indication: BRONCHITIS
     Dosage: 500MG PER DAY
     Route: 048
     Dates: start: 20060110, end: 20060110

REACTIONS (7)
  - DERMATITIS EXFOLIATIVE [None]
  - DRY SKIN [None]
  - EOSINOPHILIA [None]
  - INFLAMMATION [None]
  - LEUKOCYTOSIS [None]
  - RASH SCARLATINIFORM [None]
  - RENAL FAILURE [None]
